FAERS Safety Report 15639204 (Version 1)
Quarter: 2018Q4

REPORT INFORMATION
  Report Type: Spontaneous
  Country: US (occurrence: US)
  Receive Date: 20181120
  Receipt Date: 20181120
  Transmission Date: 20190205
  Serious: No
  Sender: FDA-Public Use
  Company Number: US-JNJFOC-20180323153

PATIENT

DRUGS (2)
  1. IMBRUVICA [Suspect]
     Active Substance: IBRUTINIB
     Indication: PRODUCT USED FOR UNKNOWN INDICATION
     Route: 065
  2. RITUXAN [Suspect]
     Active Substance: RITUXIMAB
     Indication: PRODUCT USED FOR UNKNOWN INDICATION
     Dosage: EVERY 2 WEEKS
     Route: 065

REACTIONS (6)
  - Pain [Unknown]
  - Frustration tolerance decreased [Unknown]
  - Herpes zoster [Unknown]
  - Decreased activity [Unknown]
  - Influenza [Unknown]
  - Pruritus [Unknown]

NARRATIVE: CASE EVENT DATE: 2017
